FAERS Safety Report 5955615-6 (Version None)
Quarter: 2008Q4

REPORT INFORMATION
  Report Type: 
  Country: None (occurrence: None)
  Receive Date: 20081117
  Receipt Date: 20081106
  Transmission Date: 20090506
  Serious: Yes (Other)
  Sender: FDA-Public Use
  Company Number: US-PFIZER INC-2008088592

PATIENT
  Sex: Male

DRUGS (3)
  1. CHANTIX [Suspect]
     Indication: SMOKING CESSATION THERAPY
     Dates: start: 20081001
  2. IBUPROFEN TABLETS [Concomitant]
  3. MARIJUANA [Concomitant]

REACTIONS (4)
  - AGGRESSION [None]
  - ANXIETY [None]
  - HYPERVENTILATION [None]
  - SPINAL DISORDER [None]
